FAERS Safety Report 8274048-3 (Version None)
Quarter: 2012Q2

REPORT INFORMATION
  Report Type: 
  Country: None (occurrence: None)
  Receive Date: 20120411
  Receipt Date: 20120406
  Transmission Date: 20120825
  Serious: Yes (Other)
  Sender: FDA-Public Use
  Company Number: JP-BAYER-2011-123220

PATIENT
  Age: 58 Year
  Sex: Male

DRUGS (2)
  1. NEXAVAR [Suspect]
     Dosage: 200 MG DAILY
     Route: 048
  2. NEXAVAR [Suspect]
     Indication: HEPATIC CANCER STAGE IV
     Dosage: 800 MG DAILY
     Route: 048

REACTIONS (2)
  - DUODENAL ULCER [None]
  - FAECES DISCOLOURED [None]
